FAERS Safety Report 9703689 (Version 2)
Quarter: 2013Q4

REPORT INFORMATION
  Report Type: Report from Study
  Country: NL (occurrence: NL)
  Receive Date: 20131122
  Receipt Date: 20131126
  Transmission Date: 20140711
  Serious: Yes (Hospitalization, Other)
  Sender: FDA-Public Use
  Company Number: NL-AMGEN-NLDCT2013081811

PATIENT
  Age: 43 Year
  Sex: Female
  Weight: 62 kg

DRUGS (2)
  1. ETANERCEPT [Suspect]
     Indication: PRODUCT USED FOR UNKNOWN INDICATION
     Dosage: 25 MG, 2 TIMES/WK
     Route: 065
     Dates: start: 20130426, end: 20130816
  2. NAPROXEN [Concomitant]
     Indication: SPONDYLOARTHROPATHY
     Dosage: 500 MG, UNK
     Route: 048
     Dates: start: 20121205

REACTIONS (1)
  - Pyelonephritis [Recovered/Resolved]
